FAERS Safety Report 4366307-1 (Version None)
Quarter: 2004Q2

REPORT INFORMATION
  Report Type: 
  Country: None (occurrence: None)
  Receive Date: 20040526
  Receipt Date: 20040526
  Transmission Date: 20050107
  Serious: Yes (Hospitalization)
  Sender: FDA-Public Use
  Company Number: None

PATIENT
  Age: 75 Year
  Sex: Female

DRUGS (2)
  1. IRINOTECAN (PHARMACIA) [Suspect]
     Indication: BRAIN NEOPLASM
     Dosage: 350 MG /M2 IA
     Route: 013
     Dates: start: 20040513
  2. THALIDOMIDE (CELGENE) [Suspect]
     Indication: BRAIN NEOPLASM
     Dosage: 100MG QD PO
     Route: 048
     Dates: start: 20040513

REACTIONS (8)
  - AMMONIA DECREASED [None]
  - CONFUSIONAL STATE [None]
  - DECREASED ACTIVITY [None]
  - DEPRESSED LEVEL OF CONSCIOUSNESS [None]
  - LETHARGY [None]
  - MENTAL STATUS CHANGES [None]
  - NEUTROPENIA [None]
  - PNEUMONIA [None]
